FAERS Safety Report 18595490 (Version 1)
Quarter: 2020Q4

REPORT INFORMATION
  Report Type: Spontaneous
  Country: CN (occurrence: CN)
  Receive Date: 20201209
  Receipt Date: 20201209
  Transmission Date: 20210114
  Serious: Yes (Hospitalization)
  Sender: FDA-Public Use
  Company Number: CN-PFIZER INC-2020481995

PATIENT
  Age: 19 Year
  Sex: Female
  Weight: 42 kg

DRUGS (6)
  1. SHU SI [Suspect]
     Active Substance: QUETIAPINE FUMARATE
     Indication: PSYCHOTIC BEHAVIOUR
  2. DAI SI [QUETIAPINE FUMARATE] [Suspect]
     Active Substance: QUETIAPINE FUMARATE
     Indication: PSYCHOTIC BEHAVIOUR
  3. ZOLOFT [Suspect]
     Active Substance: SERTRALINE HYDROCHLORIDE
     Indication: DEPRESSION
     Dosage: 50 MG, 1X/DAY
     Route: 048
     Dates: start: 20201106, end: 20201109
  4. SHU SI [Suspect]
     Active Substance: QUETIAPINE FUMARATE
     Indication: DEPRESSION
     Dosage: 600 MG, 1X/DAY
     Route: 048
     Dates: start: 20201126, end: 20201127
  5. DAI SI [QUETIAPINE FUMARATE] [Suspect]
     Active Substance: QUETIAPINE FUMARATE
     Indication: DEPRESSION
     Dosage: 200 MG, 1X/DAY
     Route: 048
     Dates: start: 20201106, end: 20201109
  6. ZOLOFT [Suspect]
     Active Substance: SERTRALINE HYDROCHLORIDE
     Indication: PSYCHOTIC BEHAVIOUR

REACTIONS (5)
  - Dizziness [Recovering/Resolving]
  - Merycism [Recovering/Resolving]
  - Rash [Recovering/Resolving]
  - Pruritus [Recovering/Resolving]
  - Nausea [Recovering/Resolving]

NARRATIVE: CASE EVENT DATE: 20201126
